FAERS Safety Report 11157577 (Version 1)
Quarter: 2015Q2

REPORT INFORMATION
  Report Type: Spontaneous
  Country: PL (occurrence: PL)
  Receive Date: 20150603
  Receipt Date: 20150603
  Transmission Date: 20150821
  Serious: Yes (Other)
  Sender: FDA-Public Use
  Company Number: PL-AMGEN-POLSP2015052592

PATIENT
  Age: 51 Year
  Sex: Female
  Weight: 167 kg

DRUGS (1)
  1. ENBREL [Suspect]
     Active Substance: ETANERCEPT
     Indication: RHEUMATOID ARTHRITIS
     Dosage: 50 MG, WEEKLY
     Route: 058
     Dates: start: 20150331, end: 20150505

REACTIONS (2)
  - Angiopathy [Unknown]
  - Erythema [Unknown]

NARRATIVE: CASE EVENT DATE: 20150424
